FAERS Safety Report 15018879 (Version 1)
Quarter: 2018Q2

REPORT INFORMATION
  Report Type: Spontaneous
  Country: US (occurrence: US)
  Receive Date: 20180523
  Receipt Date: 20180523
  Transmission Date: 20180711
  Serious: Yes (Hospitalization)
  Sender: FDA-Public Use
  Company Number: None

PATIENT
  Age: 65 Year
  Sex: Male

DRUGS (1)
  1. PRAVASTATIN. [Suspect]
     Active Substance: PRAVASTATIN
     Dates: start: 20180312

REACTIONS (3)
  - Rhabdomyolysis [None]
  - Drug interaction [None]
  - Acute kidney injury [None]

NARRATIVE: CASE EVENT DATE: 20180312
